FAERS Safety Report 7276321-4 (Version None)
Quarter: 2011Q1

REPORT INFORMATION
  Report Type: 
  Country: None (occurrence: None)
  Receive Date: 20110202
  Receipt Date: 20110202
  Transmission Date: 20110831
  Serious: No
  Sender: FDA-Public Use
  Company Number: None

PATIENT
  Age: 42 Year
  Sex: Female
  Weight: 68.0396 kg

DRUGS (1)
  1. RECLAST [Suspect]
     Indication: OSTEOPENIA
     Dosage: IV
     Route: 042
     Dates: start: 20100205, end: 20100205

REACTIONS (5)
  - HEADACHE [None]
  - ARTHRALGIA [None]
  - MYALGIA [None]
  - INFLUENZA LIKE ILLNESS [None]
  - PYREXIA [None]
